FAERS Safety Report 10233532 (Version 1)
Quarter: 2014Q2

REPORT INFORMATION
  Report Type: Spontaneous
  Country: DE (occurrence: DE)
  Receive Date: 20140612
  Receipt Date: 20140612
  Transmission Date: 20141212
  Serious: Yes (Disabling)
  Sender: FDA-Public Use
  Company Number: DE-DSJP-DSE-2014-111217

PATIENT
  Sex: 0

DRUGS (8)
  1. VOCADO HCT [Suspect]
     Indication: HYPERTENSION
     Dosage: 1 DF, QD
     Route: 048
  2. MIRTAZAPIN [Suspect]
     Indication: PRODUCT USED FOR UNKNOWN INDICATION
     Route: 048
     Dates: start: 20140224, end: 20140306
  3. MIRTAZAPIN [Suspect]
     Route: 048
     Dates: start: 20140307, end: 20140318
  4. MIRTAZAPIN [Suspect]
     Route: 048
     Dates: start: 20140319, end: 20140325
  5. MIRTAZAPIN [Suspect]
     Route: 048
     Dates: start: 20140326
  6. TAVOR                              /00273201/ [Suspect]
     Indication: PRODUCT USED FOR UNKNOWN INDICATION
     Dosage: 1 MG, QD
     Route: 048
     Dates: start: 20140310, end: 20140311
  7. TAVOR                              /00273201/ [Suspect]
     Dosage: 1.5 MG, QD
     Route: 048
     Dates: start: 20140312
  8. METFORMIN [Concomitant]
     Indication: PRODUCT USED FOR UNKNOWN INDICATION
     Dosage: 2000 MG, QD
     Dates: start: 2005

REACTIONS (3)
  - Circulatory collapse [Recovered/Resolved with Sequelae]
  - Fall [Recovered/Resolved with Sequelae]
  - Radius fracture [Unknown]
